FAERS Safety Report 8436091-0 (Version None)
Quarter: 2012Q2

REPORT INFORMATION
  Report Type: 
  Country: None (occurrence: None)
  Receive Date: 20120614
  Receipt Date: 20120607
  Transmission Date: 20120825
  Serious: Yes (Hospitalization)
  Sender: FDA-Public Use
  Company Number: SG-ROCHE-1076929

PATIENT
  Sex: Male
  Weight: 54 kg

DRUGS (2)
  1. EVEROLIMUS [Suspect]
     Indication: METASTATIC RENAL CELL CARCINOMA
     Route: 048
     Dates: start: 20100415, end: 20100428
  2. AVASTIN [Suspect]
     Indication: METASTATIC RENAL CELL CARCINOMA
     Dates: start: 20100415, end: 20100428

REACTIONS (3)
  - PNEUMONIA ASPIRATION [None]
  - DYSPHAGIA [None]
  - STOMATITIS [None]
